FAERS Safety Report 24988312 (Version 1)
Quarter: 2025Q1

REPORT INFORMATION
  Report Type: Spontaneous
  Country: US (occurrence: US)
  Receive Date: 20250220
  Receipt Date: 20250220
  Transmission Date: 20250409
  Serious: No
  Sender: ROCHE
  Company Number: US-ROCHE-10000209898

PATIENT

DRUGS (2)
  1. EVRYSDI [Suspect]
     Active Substance: RISDIPLAM
     Indication: Spinal muscular atrophy
     Route: 065
  2. SPINRAZA [Concomitant]
     Active Substance: NUSINERSEN

REACTIONS (2)
  - Dyspepsia [Unknown]
  - Tachycardia [Unknown]
